FAERS Safety Report 6998234-5 (Version None)
Quarter: 2010Q3

REPORT INFORMATION
  Report Type: 
  Country: None (occurrence: None)
  Receive Date: 20100920
  Receipt Date: 20070529
  Transmission Date: 20110219
  Serious: Yes (Hospitalization)
  Sender: FDA-Public Use
  Company Number: US-ASTRAZENECA-2006UW11229

PATIENT
  Age: 17124 Day
  Sex: Male
  Weight: 87.2 kg

DRUGS (26)
  1. SEROQUEL [Suspect]
     Indication: SCHIZOPHRENIA
     Dosage: 25-300 MG
     Route: 048
     Dates: start: 20010427, end: 20080607
  2. SEROQUEL [Suspect]
     Indication: DEPRESSION
     Dosage: 25-300 MG
     Route: 048
     Dates: start: 20010427, end: 20080607
  3. SEROQUEL [Suspect]
     Indication: NERVOUSNESS
     Dosage: 25-300 MG
     Route: 048
     Dates: start: 20010427, end: 20080607
  4. SEROQUEL [Suspect]
     Indication: ABNORMAL DREAMS
     Dosage: 25-300 MG
     Route: 048
     Dates: start: 20010427, end: 20080607
  5. SEROQUEL [Suspect]
     Route: 048
     Dates: start: 20070101, end: 20070601
  6. SEROQUEL [Suspect]
     Route: 048
     Dates: start: 20070101, end: 20070601
  7. SEROQUEL [Suspect]
     Route: 048
     Dates: start: 20070101, end: 20070601
  8. SEROQUEL [Suspect]
     Route: 048
     Dates: start: 20070101, end: 20070601
  9. ZYPREXA [Suspect]
     Dates: start: 20000526, end: 20030901
  10. CLOZARIL [Concomitant]
     Dates: start: 20011127
  11. GEODON [Concomitant]
     Dosage: 10 TO 15 MG
     Dates: start: 20011003
  12. RISPERDAL [Concomitant]
  13. THORAZINE [Concomitant]
  14. TRILAFON [Concomitant]
  15. BENZTROPINE MESYLATE [Concomitant]
  16. ZOLOFT [Concomitant]
     Dates: start: 20011003, end: 20030901
  17. CELEXA [Concomitant]
  18. MULTI-VITAMIN [Concomitant]
  19. HYDROCHLOROTHIAZIDE [Concomitant]
  20. TRAZODONE HCL [Concomitant]
  21. DESYREL [Concomitant]
     Dates: end: 20030901
  22. INSULIN [Concomitant]
     Dosage: 40 UNITS AM EVERY DAY
  23. NAVANE [Concomitant]
     Route: 048
  24. COGENTIN [Concomitant]
     Route: 048
  25. METOPROLOL [Concomitant]
     Route: 048
  26. PROTONIX [Concomitant]
     Route: 048

REACTIONS (5)
  - DIABETIC KETOACIDOSIS [None]
  - HYPOKALAEMIA [None]
  - PANCREATITIS ACUTE [None]
  - SINUS TACHYCARDIA [None]
  - TYPE 2 DIABETES MELLITUS [None]
